FAERS Safety Report 9107035 (Version 2)
Quarter: 2013Q1

REPORT INFORMATION
  Report Type: Report from Study
  Country: US (occurrence: US)
  Receive Date: 20130221
  Receipt Date: 20130322
  Transmission Date: 20140127
  Serious: Yes (Hospitalization)
  Sender: FDA-Public Use
  Company Number: US-PURDUE-USA-2013-0098875

PATIENT
  Sex: Female

DRUGS (1)
  1. OXYCONTIN (NDA 22-272) [Suspect]
     Indication: CERVICAL SPINAL STENOSIS
     Dosage: 80 MG, Q12H
     Route: 048

REACTIONS (6)
  - Musculoskeletal discomfort [Not Recovered/Not Resolved]
  - Abasia [Not Recovered/Not Resolved]
  - Arthritis [Unknown]
  - Bone marrow disorder [Unknown]
  - Joint swelling [Unknown]
  - Bone marrow oedema [Unknown]
